FAERS Safety Report 17302743 (Version 1)
Quarter: 2020Q1

REPORT INFORMATION
  Report Type: Spontaneous
  Country: CN (occurrence: CN)
  Receive Date: 20200122
  Receipt Date: 20200122
  Transmission Date: 20200409
  Serious: Yes (Other)
  Sender: FDA-Public Use
  Company Number: CN-B.I. PHARMACEUTICALS,INC./RIDGEFIELD-2020-BI-002720

PATIENT
  Age: 46 Year
  Sex: Female
  Weight: 45 kg

DRUGS (4)
  1. COMBIVENT [Suspect]
     Active Substance: ALBUTEROL SULFATE\IPRATROPIUM BROMIDE
     Indication: MUSCLE SPASMS
     Route: 055
     Dates: start: 20191218, end: 20191220
  2. PULMICORT TURBUHALER [Suspect]
     Active Substance: BUDESONIDE
     Indication: DYSPNOEA
  3. COMBIVENT [Suspect]
     Active Substance: ALBUTEROL SULFATE\IPRATROPIUM BROMIDE
     Indication: DYSPNOEA
  4. PULMICORT TURBUHALER [Suspect]
     Active Substance: BUDESONIDE
     Indication: INFLAMMATION
     Dosage: DOSAGE FORM: SUSPENSION FOR INHALATION
     Route: 055
     Dates: start: 20191218, end: 20191220

REACTIONS (3)
  - Dry throat [Recovering/Resolving]
  - Respiratory distress [Recovering/Resolving]
  - Throat irritation [Recovering/Resolving]

NARRATIVE: CASE EVENT DATE: 20191220
